FAERS Safety Report 24590978 (Version 2)
Quarter: 2024Q4

REPORT INFORMATION
  Report Type: Spontaneous
  Country: JP (occurrence: JP)
  Receive Date: 20241107
  Receipt Date: 20241119
  Transmission Date: 20250115
  Serious: Yes (Other)
  Sender: UCB
  Company Number: JP-UCBJ-CD202410595UCBPHAPROD

PATIENT
  Age: 1 Year
  Sex: Male
  Weight: 10.5 kg

DRUGS (7)
  1. LEVETIRACETAM [Suspect]
     Active Substance: LEVETIRACETAM
     Indication: Seizure prophylaxis
     Dosage: 20 MILLIGRAM/KILOGRAM, ONCE DAILY (QD)
     Route: 048
  2. LEVETIRACETAM [Suspect]
     Active Substance: LEVETIRACETAM
     Indication: Off label use
  3. PREDNISOLONE [Concomitant]
     Active Substance: PREDNISOLONE
     Indication: Brain oedema
     Dosage: 1.5 MILLIGRAM/KILOGRAM, ONCE DAILY (QD)
  4. CEFTRIAXONE SODIUM [Concomitant]
     Active Substance: CEFTRIAXONE SODIUM
     Indication: Product used for unknown indication
     Dosage: 120 MILLIGRAM/KILOGRAM, ONCE DAILY (QD)
  5. METRONIDAZOLE [Concomitant]
     Active Substance: METRONIDAZOLE
     Indication: Product used for unknown indication
     Dosage: 25 MILLIGRAM/KILOGRAM, ONCE DAILY (QD)
  6. VANCOMYCIN [Concomitant]
     Active Substance: VANCOMYCIN
     Indication: Product used for unknown indication
     Dosage: 50 MILLIGRAM/KILOGRAM, ONCE DAILY (QD)
  7. GLYCERIN [Concomitant]
     Active Substance: GLYCERIN
     Indication: Brain oedema
     Dosage: UNK

REACTIONS (7)
  - Cerebral ventricular rupture [Unknown]
  - Hydrocephalus [Recovered/Resolved]
  - Brain operation [Unknown]
  - Ventricular drainage [Unknown]
  - Abscess drainage [Unknown]
  - CSF shunt operation [Unknown]
  - Off label use [Unknown]
